FAERS Safety Report 24012705 (Version 2)
Quarter: 2024Q3

REPORT INFORMATION
  Report Type: Report from Study
  Country: CA (occurrence: CA)
  Receive Date: 20240626
  Receipt Date: 20240802
  Transmission Date: 20241016
  Serious: Yes (Other)
  Sender: JOHNSON AND JOHNSON
  Company Number: CA-JNJFOC-20240600964

PATIENT
  Sex: Female

DRUGS (2)
  1. REMICADE [Suspect]
     Active Substance: INFLIXIMAB
     Indication: Crohn^s disease
     Route: 041
     Dates: start: 20090106
  2. REMICADE [Suspect]
     Active Substance: INFLIXIMAB
     Indication: Fistula

REACTIONS (2)
  - Erythema multiforme [Recovering/Resolving]
  - Oral herpes [Unknown]
